FAERS Safety Report 19497706 (Version 2)
Quarter: 2021Q3

REPORT INFORMATION
  Report Type: Report from Study
  Country: CN (occurrence: CN)
  Receive Date: 20210706
  Receipt Date: 20210804
  Transmission Date: 20211014
  Serious: Yes (Hospitalization)
  Sender: FDA-Public Use
  Company Number: CN-ELI_LILLY_AND_COMPANY-CN202105003234

PATIENT
  Age: 63 Year
  Sex: Female
  Weight: 67.5 kg

DRUGS (2)
  1. VERZENIOS [Suspect]
     Active Substance: ABEMACICLIB
     Dosage: 150 MG, BID
     Route: 048
  2. VERZENIOS [Suspect]
     Active Substance: ABEMACICLIB
     Indication: BREAST CANCER
     Dosage: 150 MG, BID
     Route: 048
     Dates: start: 20210426, end: 202105

REACTIONS (17)
  - Thrombosis [Recovering/Resolving]
  - Peripheral coldness [Recovering/Resolving]
  - Hyperhidrosis [Recovering/Resolving]
  - Blood uric acid increased [Recovering/Resolving]
  - Toothache [Not Recovered/Not Resolved]
  - Pain [Not Recovered/Not Resolved]
  - Diarrhoea [Recovering/Resolving]
  - Nausea [Recovering/Resolving]
  - Noninfective gingivitis [Not Recovered/Not Resolved]
  - Dysstasia [Unknown]
  - Vomiting [Recovering/Resolving]
  - Metastases to kidney [Unknown]
  - Renal impairment [Recovering/Resolving]
  - Eating disorder [Recovering/Resolving]
  - Hypokalaemia [Recovering/Resolving]
  - Cardiac discomfort [Recovering/Resolving]
  - Ageusia [Recovering/Resolving]

NARRATIVE: CASE EVENT DATE: 20210503
